FAERS Safety Report 10766871 (Version 1)
Quarter: 2015Q1

REPORT INFORMATION
  Report Type: Spontaneous
  Country: US (occurrence: US)
  Receive Date: 20150205
  Receipt Date: 20150205
  Transmission Date: 20150721
  Serious: No
  Sender: FDA-Public Use
  Company Number: US-ANACOR-2014ANA00001

PATIENT
  Age: 59 Year
  Sex: Female
  Weight: 50.79 kg

DRUGS (2)
  1. WELLBUTRIN [Concomitant]
     Active Substance: BUPROPION HYDROCHLORIDE
     Dosage: 300 MG, 1X/DAY
  2. KERYDIN [Suspect]
     Active Substance: TAVABOROLE
     Indication: ONYCHOMYCOSIS
     Dosage: UNK UNK, ONCE
     Route: 061
     Dates: start: 20141010, end: 20141010

REACTIONS (2)
  - Pain [Recovered/Resolved]
  - Application site pain [None]

NARRATIVE: CASE EVENT DATE: 20141010
